FAERS Safety Report 5240377-0 (Version None)
Quarter: 2007Q1

REPORT INFORMATION
  Report Type: 
  Country: None (occurrence: None)
  Receive Date: 20061208
  Receipt Date: 20050928
  Transmission Date: 20070707
  Serious: Yes (Other)
  Sender: FDA-Public Use
  Company Number: 2005UW14555

PATIENT
  Age: 76 Year
  Sex: Female
  Weight: 62.142 kg

DRUGS (5)
  1. CRESTOR [Suspect]
     Indication: BLOOD CHOLESTEROL INCREASED
     Dosage: 5 MG DAILY PO
     Route: 048
     Dates: start: 20050901
  2. XANAX [Concomitant]
  3. ZIAC [Concomitant]
  4. ASPIRIN [Concomitant]
  5. PEPCID [Concomitant]

REACTIONS (3)
  - HEADACHE [None]
  - PAIN IN EXTREMITY [None]
  - SINUS DISORDER [None]
